FAERS Safety Report 4856942-6 (Version None)
Quarter: 2005Q4

REPORT INFORMATION
  Report Type: 
  Country: None (occurrence: None)
  Receive Date: 20051219
  Receipt Date: 20041201
  Transmission Date: 20060501
  Serious: No
  Sender: FDA-Public Use
  Company Number: US-GLAXOSMITHKLINE-A0535686A

PATIENT
  Age: 47 Year
  Sex: Male

DRUGS (1)
  1. NICODERM CQ [Suspect]
     Dates: start: 20041130, end: 20041130

REACTIONS (3)
  - CHEST PAIN [None]
  - NIPPLE DISORDER [None]
  - SWELLING [None]
